FAERS Safety Report 4641116-4 (Version None)
Quarter: 2005Q2

REPORT INFORMATION
  Report Type: 
  Country: None (occurrence: None)
  Receive Date: 20050421
  Receipt Date: 20050323
  Transmission Date: 20051028
  Serious: Yes (Hospitalization)
  Sender: FDA-Public Use
  Company Number: AU-BRISTOL-MYERS SQUIBB COMPANY-12910071

PATIENT
  Age: 68 Year

DRUGS (2)
  1. CARBOPLATIN [Suspect]
     Indication: NON-SMALL CELL LUNG CANCER
     Dates: start: 20050316, end: 20050316
  2. TAXOL [Suspect]
     Indication: NON-SMALL CELL LUNG CANCER
     Dates: start: 20050316, end: 20050316

REACTIONS (5)
  - CHEST PAIN [None]
  - DEHYDRATION [None]
  - DIARRHOEA [None]
  - NAUSEA [None]
  - VOMITING [None]
